FAERS Safety Report 23854231 (Version 1)
Quarter: 2024Q2

REPORT INFORMATION
  Report Type: Spontaneous
  Country: BE (occurrence: BE)
  Receive Date: 20240514
  Receipt Date: 20240514
  Transmission Date: 20240716
  Serious: Yes (Life-Threatening)
  Sender: FDA-Public Use
  Company Number: None

PATIENT
  Sex: Male
  Weight: 90 kg

DRUGS (8)
  1. ACETAMINOPHEN [Suspect]
     Active Substance: ACETAMINOPHEN
     Indication: Analgesic therapy
     Dosage: ROUTE: INTRAVENOUS (NOT OTHERWISE SPECIFIED)
     Dates: start: 20240416, end: 20240416
  2. ROPIVACAINE [Suspect]
     Active Substance: ROPIVACAINE
     Indication: Local anaesthesia
     Dosage: ROUTE: SUBCUTANEOUS
     Dates: start: 20240416, end: 20240416
  3. PROPOFOL 1% [Suspect]
     Active Substance: PROPOFOL
     Indication: Anaesthesia
     Dosage: POSOLOGY 200?ROUTE: INTRAVENOUS (NOT OTHERWISE SPECIFIED)
     Dates: start: 20240416, end: 20240416
  4. ROCURONIUM BROMIDE [Suspect]
     Active Substance: ROCURONIUM BROMIDE
     Indication: Product used for unknown indication
     Dosage: ROUTE: INTRAVENOUS (NOT OTHERWISE SPECIFIED)
     Dates: start: 20240416, end: 20240416
  5. LIDOCAINE [Suspect]
     Active Substance: LIDOCAINE
     Indication: Local anaesthesia
     Dosage: LIDOCAINE 2 PERCENT?ROUTE: INTRAVENOUS
     Dates: start: 20240416, end: 20240416
  6. VOLTAREN [Suspect]
     Active Substance: DICLOFENAC SODIUM
     Indication: Analgesic therapy
     Dosage: ROUTE: INTRAVENOUS
     Dates: start: 20240416, end: 20240416
  7. CEFAZOLIN [Suspect]
     Active Substance: CEFAZOLIN
     Indication: Product used for unknown indication
     Dosage: ROUTE: INTRAVENOUS
     Dates: start: 20240416, end: 20240416
  8. CLONIDINE [Suspect]
     Active Substance: CLONIDINE
     Indication: Analgesic therapy
     Dosage: ROUTE: INTRAVENOUS
     Dates: start: 20240416, end: 20240416

REACTIONS (4)
  - Hypotension [Unknown]
  - Anaphylactic reaction [Unknown]
  - Erythema [Unknown]
  - Hypoxia [Unknown]

NARRATIVE: CASE EVENT DATE: 20240416
